FAERS Safety Report 5109830-4 (Version None)
Quarter: 2006Q3

REPORT INFORMATION
  Report Type: 
  Country: None (occurrence: None)
  Receive Date: 20060918
  Receipt Date: 20060918
  Transmission Date: 20061208
  Serious: Yes (Life-Threatening, Hospitalization, Disabling)
  Sender: FDA-Public Use
  Company Number: None

PATIENT
  Age: 61 Year
  Sex: Male
  Weight: 113.3993 kg

DRUGS (1)
  1. MELOXICAM [Suspect]
     Indication: ANALGESIC EFFECT
     Dosage: 15 MG DAILY
     Dates: start: 20060825, end: 20060903

REACTIONS (1)
  - MYOCARDIAL INFARCTION [None]
